FAERS Safety Report 23919871 (Version 1)
Quarter: 2024Q2

REPORT INFORMATION
  Report Type: Spontaneous
  Country: GB (occurrence: GB)
  Receive Date: 20240530
  Receipt Date: 20240530
  Transmission Date: 20240716
  Serious: Yes (Other)
  Sender: FDA-Public Use
  Company Number: GB-002147023-NVSC2024GB113254

PATIENT
  Age: 69 Year
  Sex: Female

DRUGS (2)
  1. TEGRETOL [Suspect]
     Active Substance: CARBAMAZEPINE
     Indication: Bipolar disorder
     Dosage: UNK UNK, QD
     Route: 065
  2. TEGRETOL [Suspect]
     Active Substance: CARBAMAZEPINE
     Indication: Bipolar disorder
     Dosage: UNK (2 X 200MG SLOW RELEASE)
     Route: 065

REACTIONS (5)
  - Epilepsy [Unknown]
  - Petit mal epilepsy [Unknown]
  - Partial seizures [Unknown]
  - Aura [Unknown]
  - Product availability issue [Unknown]
